FAERS Safety Report 8999715 (Version 1)
Quarter: 2013Q1

REPORT INFORMATION
  Report Type: Spontaneous
  Country: FR (occurrence: FR)
  Receive Date: 20130102
  Receipt Date: 20130102
  Transmission Date: 20140127
  Serious: Yes (Hospitalization)
  Sender: FDA-Public Use
  Company Number: FR-GLAXOSMITHKLINE-B0854985A

PATIENT
  Age: 85 Year
  Sex: Female

DRUGS (7)
  1. ZOPHREN [Suspect]
     Indication: PROPHYLAXIS
     Dosage: 8MG CYCLIC
     Route: 042
     Dates: start: 20121004, end: 20121004
  2. TOMUDEX [Suspect]
     Indication: COLORECTAL CANCER
     Dosage: 4.5MG CYCLIC
     Route: 042
     Dates: start: 20121004, end: 20121004
  3. OXALIPLATINE [Suspect]
     Indication: COLORECTAL CANCER
     Dosage: 150MG CYCLIC
     Route: 042
     Dates: start: 20121004, end: 20121004
  4. METHYLPREDNISOLONE [Suspect]
     Indication: PROPHYLAXIS
     Dosage: 80MG CYCLIC
     Route: 042
     Dates: start: 20121004, end: 20121004
  5. MAGNESIUM SULFATE [Suspect]
     Indication: PROPHYLAXIS
     Dosage: 1G CYCLIC
     Route: 042
     Dates: start: 20121004, end: 20121004
  6. CALCIUM SULFATE [Suspect]
     Indication: PROPHYLAXIS
     Dosage: 1G CYCLIC
     Route: 042
     Dates: start: 20121004, end: 20121004
  7. GLUCOSE (G5) [Concomitant]
     Indication: PROPHYLAXIS
     Dates: start: 20121004, end: 20121004

REACTIONS (7)
  - Non-cardiogenic pulmonary oedema [Recovered/Resolved]
  - Pyrexia [Recovered/Resolved]
  - Dyspnoea [Recovered/Resolved]
  - Oxygen saturation decreased [Recovered/Resolved]
  - Chills [Recovered/Resolved]
  - Hypertension [Recovered/Resolved]
  - Tachycardia [Recovered/Resolved]
